FAERS Safety Report 6476149-9 (Version None)
Quarter: 2009Q4

REPORT INFORMATION
  Report Type: 
  Country: None (occurrence: None)
  Receive Date: 20091204
  Receipt Date: 20090204
  Transmission Date: 20100525
  Serious: No
  Sender: FDA-Public Use
  Company Number: US-AMGEN-KDL328542

PATIENT
  Sex: Female
  Weight: 86.7 kg

DRUGS (2)
  1. ENBREL [Suspect]
     Indication: RHEUMATOID ARTHRITIS
     Route: 058
     Dates: start: 20080220, end: 20081130
  2. ARAVA [Concomitant]

REACTIONS (2)
  - MUSCULOSKELETAL PAIN [None]
  - RASH MACULAR [None]
